FAERS Safety Report 4776014-9 (Version None)
Quarter: 2005Q3

REPORT INFORMATION
  Report Type: 
  Country: None (occurrence: None)
  Receive Date: 20050922
  Receipt Date: 20050822
  Transmission Date: 20060218
  Serious: Yes (Hospitalization)
  Sender: FDA-Public Use
  Company Number: US-ROCHE-415289

PATIENT
  Age: 46 Year
  Sex: Male

DRUGS (2)
  1. PEGASYS [Suspect]
     Dosage: ROUTE REPORTED AS INJECTABLE.
     Route: 050
     Dates: start: 20050609, end: 20050815
  2. COPEGUS [Suspect]
     Route: 048
     Dates: start: 20050609, end: 20050815

REACTIONS (7)
  - BLOOD CALCIUM DECREASED [None]
  - DIZZINESS [None]
  - HAEMOGLOBIN DECREASED [None]
  - HEAD INJURY [None]
  - LOSS OF CONSCIOUSNESS [None]
  - PYREXIA [None]
  - SINUS HEADACHE [None]
